FAERS Safety Report 7877576-5 (Version None)
Quarter: 2011Q4

REPORT INFORMATION
  Report Type: 
  Country: None (occurrence: None)
  Receive Date: 20111031
  Receipt Date: 20111025
  Transmission Date: 20120403
  Serious: Yes (Other)
  Sender: FDA-Public Use
  Company Number: US-AMGEN-USASP2011053361

PATIENT
  Sex: Female
  Weight: 58.05 kg

DRUGS (2)
  1. NPLATE [Suspect]
     Indication: IDIOPATHIC THROMBOCYTOPENIC PURPURA
     Dosage: 120 MUG, Q2WK
     Route: 058
     Dates: start: 20090508
  2. PREDNISONE [Concomitant]
     Indication: IDIOPATHIC THROMBOCYTOPENIC PURPURA
     Dosage: 5 MG, QOD

REACTIONS (3)
  - THROMBOSIS [None]
  - EMBOLISM [None]
  - CONSTIPATION [None]
